FAERS Safety Report 8616010 (Version 2)
Quarter: 2013Q2

REPORT INFORMATION
  Report Type: Spontaneous
  Country: US (occurrence: US)
  Receive Date: 20120614
  Receipt Date: 20130606
  Transmission Date: 20140414
  Serious: No
  Sender: FDA-Public Use
  Company Number: US-AMGEN-USASP2012032882

PATIENT
  Sex: Female

DRUGS (1)
  1. PROLIA [Suspect]
     Indication: OSTEOPOROSIS POSTMENOPAUSAL
     Dosage: 60 MG, Q6MO
     Route: 042

REACTIONS (4)
  - Blister [Recovering/Resolving]
  - Injection site swelling [Recovering/Resolving]
  - Arthritis [Recovering/Resolving]
  - Local swelling [Recovering/Resolving]
